FAERS Safety Report 10024174 (Version 2)
Quarter: 2014Q2

REPORT INFORMATION
  Report Type: Spontaneous
  Country: US (occurrence: US)
  Receive Date: 20140320
  Receipt Date: 20140429
  Transmission Date: 20141212
  Serious: No
  Sender: FDA-Public Use
  Company Number: US-PFIZER INC-2014079621

PATIENT
  Sex: 0

DRUGS (4)
  1. NEURONTIN [Suspect]
     Indication: NEUROPATHY PERIPHERAL
     Dosage: UNK
  2. OMEPRAZOLE [Suspect]
     Dosage: UNK
  3. CRESTOR [Suspect]
     Dosage: UNK
  4. SYNTHROID [Suspect]
     Dosage: UNK

REACTIONS (1)
  - Pruritus [Unknown]
